FAERS Safety Report 15279897 (Version 1)
Quarter: 2018Q3

REPORT INFORMATION
  Report Type: Spontaneous
  Country: CH (occurrence: CH)
  Receive Date: 20180815
  Receipt Date: 20180815
  Transmission Date: 20181010
  Serious: Yes (Other)
  Sender: FDA-Public Use
  Company Number: CH-SA-2018SA208651

PATIENT
  Age: 73 Year
  Sex: Male

DRUGS (17)
  1. ANXIOLIT [Concomitant]
     Active Substance: OXAZEPAM
     Dosage: AS NECESSARY
  2. LAXOBERON [Concomitant]
     Active Substance: SODIUM PICOSULFATE
     Dosage: AS NECESSARY
  3. PREDNISONE. [Concomitant]
     Active Substance: PREDNISONE
     Dosage: UNK
  4. CLEXANE [Suspect]
     Active Substance: ENOXAPARIN SODIUM
     Dosage: 40 MG, QD
     Route: 058
  5. PURSANA [Concomitant]
     Active Substance: FIG FRUIT OIL\SORBITOL
     Dosage: UNK
  6. ATORVASTATIN [Suspect]
     Active Substance: ATORVASTATIN
     Dosage: 80 MG, QD
     Route: 048
     Dates: start: 20180424, end: 20180511
  7. NEXIUM [Suspect]
     Active Substance: ESOMEPRAZOLE MAGNESIUM
     Dosage: 20 MG, QD
     Route: 048
  8. HALDOL [Suspect]
     Active Substance: HALOPERIDOL
     Dosage: MAX 3X/D ; AS NECESSARY
     Route: 048
  9. CLYSSIE [Concomitant]
     Dosage: AS NECESSARY
  10. LUVIT D3 [Concomitant]
     Dosage: UNK
  11. HALDOL [Suspect]
     Active Substance: HALOPERIDOL
     Dosage: 2X/D ; AS NECESSARY
     Route: 058
  12. MORPHINE HCL [Concomitant]
     Active Substance: MORPHINE HYDROCHLORIDE
  13. ATORVASTATIN [Suspect]
     Active Substance: ATORVASTATIN
     Dosage: 40 UNK
     Route: 048
     Dates: start: 20180511, end: 20180515
  14. DAFALGAN [Concomitant]
     Active Substance: ACETAMINOPHEN
     Dosage: AS NECESSARY
  15. ASPIRIN CARDIO [Suspect]
     Active Substance: ASPIRIN
     Dosage: 100 MG
     Route: 048
     Dates: start: 20180424
  16. HALDOL [Suspect]
     Active Substance: HALOPERIDOL
     Dosage: 0.25 MG, TID
     Route: 048
  17. TORASEMIDE [Concomitant]
     Active Substance: TORSEMIDE
     Dosage: UNK

REACTIONS (1)
  - Hepatocellular injury [Recovering/Resolving]

NARRATIVE: CASE EVENT DATE: 20180616
